FAERS Safety Report 9828371 (Version 1)
Quarter: 2013Q4

REPORT INFORMATION
  Report Type: Spontaneous
  Country: US (occurrence: None)
  Receive Date: 20131120
  Receipt Date: 20131120
  Transmission Date: 20140711
  Serious: No
  Sender: FDA-Public Use
  Company Number: 1000049881

PATIENT
  Age: 35 Year
  Sex: Male

DRUGS (2)
  1. VIIBRYD [Suspect]
     Indication: DEPRESSION
     Route: 048
     Dates: start: 201309, end: 201309
  2. CIPROFLOXACIN (CIPROFLOXACIN) (CIPROFLOXACIN) [Concomitant]

REACTIONS (1)
  - Fatigue [None]
